FAERS Safety Report 22192028 (Version 1)
Quarter: 2023Q2

REPORT INFORMATION
  Report Type: Report from Study
  Country: CN (occurrence: None)
  Receive Date: 20230410
  Receipt Date: 20230410
  Transmission Date: 20230721
  Serious: Yes (Death, Hospitalization)
  Sender: FDA-Public Use
  Company Number: CN-ROCHE-3122638

PATIENT
  Age: 64 Year
  Sex: Female
  Weight: 54.5 kg

DRUGS (78)
  1. MOSUNETUZUMAB [Suspect]
     Active Substance: MOSUNETUZUMAB
     Indication: Follicular lymphoma
     Dosage: ON 14/JUN/2022 (11:15 AM TO 03:15 PM), SHE RECEIVED MOST RECENT DOSE 2 MG OF STUDY DRUG MOSUNETUZUMA
     Route: 042
     Dates: start: 20220607
  2. DIPHENHYDRAMINE HYDROCHLORIDE [Concomitant]
     Active Substance: DIPHENHYDRAMINE HYDROCHLORIDE
     Route: 030
     Dates: start: 20220607, end: 20220607
  3. DIPHENHYDRAMINE HYDROCHLORIDE [Concomitant]
     Active Substance: DIPHENHYDRAMINE HYDROCHLORIDE
     Route: 030
     Dates: start: 20220614, end: 20220614
  4. DIPHENHYDRAMINE HYDROCHLORIDE [Concomitant]
     Active Substance: DIPHENHYDRAMINE HYDROCHLORIDE
     Route: 030
     Dates: start: 20220624, end: 20220624
  5. DIPHENHYDRAMINE HYDROCHLORIDE [Concomitant]
     Active Substance: DIPHENHYDRAMINE HYDROCHLORIDE
     Route: 030
     Dates: start: 20220705, end: 20220705
  6. COMPOUND PARACETAMOL [Concomitant]
     Indication: Premedication
     Route: 048
     Dates: start: 20220607, end: 20220607
  7. COMPOUND PARACETAMOL [Concomitant]
     Route: 048
     Dates: start: 20220614, end: 20220614
  8. COMPOUND PARACETAMOL [Concomitant]
     Route: 048
     Dates: start: 20220624, end: 20220624
  9. COMPOUND PARACETAMOL [Concomitant]
     Route: 048
     Dates: start: 20220705, end: 20220705
  10. DEXAMETHASONE SODIUM PHOSPHATE [Concomitant]
     Active Substance: DEXAMETHASONE SODIUM PHOSPHATE
     Indication: Premedication
     Route: 042
     Dates: start: 20220607, end: 20220607
  11. DEXAMETHASONE SODIUM PHOSPHATE [Concomitant]
     Active Substance: DEXAMETHASONE SODIUM PHOSPHATE
     Route: 042
     Dates: start: 20220614, end: 20220614
  12. DEXAMETHASONE SODIUM PHOSPHATE [Concomitant]
     Active Substance: DEXAMETHASONE SODIUM PHOSPHATE
     Route: 042
     Dates: start: 20220624, end: 20220624
  13. DEXAMETHASONE SODIUM PHOSPHATE [Concomitant]
     Active Substance: DEXAMETHASONE SODIUM PHOSPHATE
     Route: 042
     Dates: start: 20220705, end: 20220705
  14. ILAPRAZOLE [Concomitant]
     Active Substance: ILAPRAZOLE
     Indication: Premedication
     Route: 042
     Dates: start: 20220607, end: 20220607
  15. ILAPRAZOLE [Concomitant]
     Active Substance: ILAPRAZOLE
     Route: 042
     Dates: start: 20220614, end: 20220614
  16. ILAPRAZOLE [Concomitant]
     Active Substance: ILAPRAZOLE
     Route: 042
     Dates: start: 20220624, end: 20220624
  17. ILAPRAZOLE [Concomitant]
     Active Substance: ILAPRAZOLE
     Dosage: GIVEN FOR PROPHYLAXIS
     Route: 042
     Dates: start: 20220705, end: 20220705
  18. DEXTROSE\SODIUM CHLORIDE [Concomitant]
     Active Substance: DEXTROSE\SODIUM CHLORIDE
     Indication: Premedication
     Route: 042
     Dates: start: 20220606, end: 20220606
  19. DEXTROSE\SODIUM CHLORIDE [Concomitant]
     Active Substance: DEXTROSE\SODIUM CHLORIDE
     Route: 042
     Dates: start: 20220613, end: 20220613
  20. DEXTROSE\SODIUM CHLORIDE [Concomitant]
     Active Substance: DEXTROSE\SODIUM CHLORIDE
     Route: 042
     Dates: start: 20220620, end: 20220620
  21. DEXTROSE\SODIUM CHLORIDE [Concomitant]
     Active Substance: DEXTROSE\SODIUM CHLORIDE
     Route: 042
     Dates: start: 20220704, end: 20220704
  22. DEXTROSE\SODIUM CHLORIDE [Concomitant]
     Active Substance: DEXTROSE\SODIUM CHLORIDE
     Route: 042
     Dates: start: 20220710, end: 20220710
  23. COMPOUND GLYCYRRHIZA [Concomitant]
     Indication: Cough
     Route: 048
     Dates: start: 20220608, end: 20220610
  24. COMPOUND GLYCYRRHIZA [Concomitant]
     Indication: Productive cough
  25. FAT EMULSION, AMINO ACIDS (17) AND GLUCOSE (11%) [Concomitant]
     Route: 042
     Dates: start: 20220620, end: 20220620
  26. FAT EMULSION, AMINO ACIDS (17) AND GLUCOSE (11%) [Concomitant]
     Route: 042
     Dates: start: 20220621, end: 20220627
  27. FAT EMULSION, AMINO ACIDS (17) AND GLUCOSE (11%) [Concomitant]
     Route: 042
     Dates: start: 202207, end: 202207
  28. FUROSEMIDE [Concomitant]
     Active Substance: FUROSEMIDE
     Route: 042
     Dates: start: 20220623, end: 20220623
  29. FUROSEMIDE [Concomitant]
     Active Substance: FUROSEMIDE
     Route: 048
     Dates: start: 20220704, end: 20220704
  30. ZOLPIDEM TARTRATE [Concomitant]
     Active Substance: ZOLPIDEM TARTRATE
     Indication: Insomnia
     Route: 048
     Dates: start: 20220625, end: 20220625
  31. CEFOPERAZONE SODIUM\SULBACTAM SODIUM [Concomitant]
     Active Substance: CEFOPERAZONE SODIUM\SULBACTAM SODIUM
     Route: 042
     Dates: start: 20220625, end: 20220625
  32. COMPOUND AMIONPRINE AND ANTIPYRINE [Concomitant]
     Route: 030
     Dates: start: 20220625
  33. OCTREOTIDE ACETATE [Concomitant]
     Active Substance: OCTREOTIDE ACETATE
     Route: 058
     Dates: start: 20220620, end: 20220627
  34. ALBUMIN HUMAN [Concomitant]
     Active Substance: ALBUMIN HUMAN
     Indication: Hypoalbuminaemia
     Route: 042
     Dates: start: 20220623, end: 20220623
  35. ALBUMIN HUMAN [Concomitant]
     Active Substance: ALBUMIN HUMAN
     Route: 042
     Dates: start: 202207, end: 202207
  36. CELECOXIB [Concomitant]
     Active Substance: CELECOXIB
     Route: 048
     Dates: start: 20220623, end: 20220623
  37. MUCOPOLYSACCHARIDE POLYSULFATE [Concomitant]
     Route: 061
     Dates: start: 20220625, end: 20220704
  38. SODIUM CHLORIDE [Concomitant]
     Active Substance: SODIUM CHLORIDE
     Route: 042
     Dates: start: 20220710, end: 20220710
  39. PENICILLIN G SODIUM [Concomitant]
     Active Substance: PENICILLIN G SODIUM
     Route: 042
     Dates: start: 20220710, end: 20220710
  40. INSULIN HUMAN [Concomitant]
     Active Substance: INSULIN HUMAN
     Indication: Blood glucose increased
     Route: 042
     Dates: start: 20220710, end: 20220710
  41. INSULIN HUMAN [Concomitant]
     Active Substance: INSULIN HUMAN
     Route: 042
     Dates: start: 202207, end: 202207
  42. FLUTICASONE PROPIONATE [Concomitant]
     Active Substance: FLUTICASONE PROPIONATE
     Indication: Productive cough
     Route: 055
     Dates: start: 20220711, end: 20220713
  43. IPRATROPIUM BROMIDE [Concomitant]
     Active Substance: IPRATROPIUM BROMIDE\IPRATROPIUM BROMIDE ANHYDROUS
     Indication: Productive cough
     Route: 055
     Dates: start: 20220711, end: 20220713
  44. LEVALBUTEROL HYDROCHLORIDE [Concomitant]
     Active Substance: LEVALBUTEROL HYDROCHLORIDE
     Indication: Productive cough
     Route: 055
     Dates: start: 20220711, end: 20220713
  45. AMBROXOL HYDROCHLORIDE [Concomitant]
     Active Substance: AMBROXOL HYDROCHLORIDE
     Indication: Productive cough
     Route: 042
     Dates: start: 20220711, end: 20220713
  46. AMBROXOL HYDROCHLORIDE [Concomitant]
     Active Substance: AMBROXOL HYDROCHLORIDE
     Route: 042
     Dates: start: 202207, end: 202207
  47. PHOSPHOLIPID [Concomitant]
     Active Substance: PHOSPHOLIPID
     Indication: Aspartate aminotransferase increased
     Route: 042
     Dates: start: 20220711, end: 20220713
  48. ITOPRIDE HYDROCHLORIDE [Concomitant]
     Active Substance: ITOPRIDE HYDROCHLORIDE
     Route: 048
     Dates: start: 20220711, end: 20220714
  49. ESOMEPRAZOLE SODIUM [Concomitant]
     Active Substance: ESOMEPRAZOLE SODIUM
     Route: 042
     Dates: start: 20220710, end: 20220713
  50. ESOMEPRAZOLE SODIUM [Concomitant]
     Active Substance: ESOMEPRAZOLE SODIUM
     Route: 042
     Dates: start: 202207, end: 202207
  51. ALBUMIN PREPARED FROM HUMAN PLASMA [Concomitant]
     Indication: Hypoalbuminaemia
     Route: 042
     Dates: start: 20220711, end: 20220712
  52. GLYCERIN [Concomitant]
     Active Substance: GLYCERIN
     Indication: Insomnia
     Route: 054
     Dates: start: 20220711, end: 20220711
  53. GLYCERIN [Concomitant]
     Active Substance: GLYCERIN
     Route: 061
     Dates: start: 202207, end: 202207
  54. SODIUM PHOSPHATES RECTAL [Concomitant]
     Indication: Constipation
     Route: 061
     Dates: start: 20220711, end: 20220711
  55. LACTULOSE [Concomitant]
     Active Substance: LACTULOSE
     Indication: Constipation
     Route: 048
     Dates: start: 20220711, end: 20220711
  56. LACTULOSE [Concomitant]
     Active Substance: LACTULOSE
     Route: 048
     Dates: start: 202207, end: 202207
  57. ALPRAZOLAM [Concomitant]
     Active Substance: ALPRAZOLAM
     Indication: Insomnia
     Route: 048
     Dates: start: 20220711, end: 20220711
  58. LIDOCAINE HYDROCHLORIDE [Concomitant]
     Active Substance: LIDOCAINE HYDROCHLORIDE
     Route: 030
     Dates: start: 20220712, end: 20220712
  59. LIDOCAINE HYDROCHLORIDE [Concomitant]
     Active Substance: LIDOCAINE HYDROCHLORIDE
     Route: 058
     Dates: start: 202207, end: 202207
  60. METOCLOPRAMIDE HYDROCHLORIDE [Concomitant]
     Active Substance: METOCLOPRAMIDE HYDROCHLORIDE
     Route: 030
     Dates: start: 20220713, end: 20220713
  61. PANTOPRAZOLE SODIUM [Concomitant]
     Active Substance: PANTOPRAZOLE SODIUM
     Route: 048
     Dates: start: 20220713, end: 20220714
  62. MUCOPOLYSACCHARIDE POLYSULFATE [Concomitant]
     Route: 061
     Dates: start: 20220625, end: 20220704
  63. ESTAZOLAM [Concomitant]
     Active Substance: ESTAZOLAM
     Indication: Insomnia
     Route: 048
     Dates: start: 202207, end: 202207
  64. DEZOCINE [Concomitant]
     Active Substance: DEZOCINE
  65. OXYCODONE HYDROCHLORIDE [Concomitant]
     Active Substance: OXYCODONE HYDROCHLORIDE
     Indication: Abdominal pain
     Route: 048
     Dates: start: 202207, end: 202207
  66. TRAMADOL HYDROCHLORIDE [Concomitant]
     Active Substance: TRAMADOL HYDROCHLORIDE
     Indication: Abdominal pain
     Route: 030
     Dates: start: 202207, end: 202207
  67. FUROSEMIDE [Concomitant]
     Active Substance: FUROSEMIDE
     Indication: Polyuria
     Route: 030
     Dates: start: 202207, end: 202207
  68. PHLOROGLUCINOL [Concomitant]
     Active Substance: PHLOROGLUCINOL
     Indication: Abdominal pain
     Route: 030
     Dates: start: 202207, end: 202207
  69. BUTORPHANOL TARTRATE [Concomitant]
     Active Substance: BUTORPHANOL TARTRATE
     Indication: Abdominal pain
     Route: 030
     Dates: start: 202207, end: 202207
  70. SODIUM CITRATE [Concomitant]
     Active Substance: SODIUM CITRATE
     Route: 030
     Dates: start: 202207, end: 202207
  71. LEUCOGEN (CHINA) [Concomitant]
     Indication: Platelet count decreased
     Route: 048
     Dates: start: 202207, end: 202207
  72. RECOMBINANT HUMAN GRANULOCYTE STIMULATING FACTOR (UNK INGREDIENTS) [Concomitant]
     Indication: White blood cell count decreased
     Route: 058
     Dates: start: 202207, end: 202207
  73. VITAMIN B6 [Concomitant]
     Active Substance: PYRIDOXINE HYDROCHLORIDE
     Route: 042
     Dates: start: 202207, end: 202207
  74. VITAMIN C [Concomitant]
     Active Substance: ASCORBIC ACID
     Route: 042
     Dates: start: 202207, end: 202207
  75. DEXMEDETOMIDINE HYDROCHLORIDE [Concomitant]
     Active Substance: DEXMEDETOMIDINE HYDROCHLORIDE
     Route: 030
     Dates: start: 202207, end: 202207
  76. OMEPRAZOLE SODIUM [Concomitant]
     Active Substance: OMEPRAZOLE SODIUM
     Route: 042
     Dates: start: 202207, end: 202207
  77. THYMOPENTIN [Concomitant]
     Active Substance: THYMOPENTIN
     Route: 042
     Dates: start: 202207, end: 202207
  78. HERBALS [Concomitant]
     Active Substance: HERBALS
     Indication: Cough
     Route: 042
     Dates: start: 202207, end: 202207

REACTIONS (3)
  - Septic shock [Fatal]
  - Subileus [Recovered/Resolved]
  - Abdominal distension [Not Recovered/Not Resolved]

NARRATIVE: CASE EVENT DATE: 20220618
